FAERS Safety Report 14615123 (Version 3)
Quarter: 2018Q1

REPORT INFORMATION
  Report Type: Spontaneous
  Country: JP (occurrence: JP)
  Receive Date: 20180308
  Receipt Date: 20180325
  Transmission Date: 20180509
  Serious: Yes (Death)
  Sender: FDA-Public Use
  Company Number: JP-BEH-2018088511

PATIENT
  Age: 67 Year
  Sex: Male
  Weight: 58.6 kg

DRUGS (1)
  1. KCENTRA [Suspect]
     Active Substance: COAGULATION FACTOR IX HUMAN\COAGULATION FACTOR VII HUMAN\COAGULATION FACTOR X HUMAN\PROTEIN C\PROTEIN S HUMAN\PROTHROMBIN
     Indication: PRODUCT USED FOR UNKNOWN INDICATION
     Dosage: 3000 IU, SINGLE
     Route: 042
     Dates: start: 20180209, end: 20180209

REACTIONS (2)
  - Mesenteric arterial occlusion [Fatal]
  - Coeliac artery occlusion [Fatal]

NARRATIVE: CASE EVENT DATE: 20180213
